FAERS Safety Report 8676403 (Version 2)
Quarter: 2015Q1

REPORT INFORMATION
  Report Type: Report from Study
  Country: FR (occurrence: FR)
  Receive Date: 20120720
  Receipt Date: 20150327
  Transmission Date: 20150721
  Serious: Yes (Death, Life-Threatening, Hospitalization)
  Sender: FDA-Public Use
  Company Number: PHHO2012FR006822

PATIENT
  Age: 89 Year
  Sex: Female

DRUGS (6)
  1. KERLONE [Concomitant]
     Active Substance: BETAXOLOL HYDROCHLORIDE
     Indication: HYPERTENSION
     Dosage: 1 DF, QD
     Route: 065
  2. RIVASTIGMIN [Suspect]
     Active Substance: RIVASTIGMINE
     Indication: CONFUSIONAL STATE
     Dosage: UNK
     Route: 062
     Dates: start: 20111129, end: 20111206
  3. PARACETAMOL [Concomitant]
     Active Substance: ACETAMINOPHEN
     Indication: PRODUCT USED FOR UNKNOWN INDICATION
     Dosage: UNK
     Route: 048
     Dates: start: 20111205
  4. AMLOR [Concomitant]
     Active Substance: AMLODIPINE BESYLATE
     Indication: HYPERTENSION
     Dosage: 10 MG, QD
     Route: 048
     Dates: start: 20111128
  5. ESOMEPRAZOLE [Concomitant]
     Active Substance: ESOMEPRAZOLE
     Indication: PAIN
     Dosage: 1 DF, QD
     Route: 048
     Dates: start: 20111205
  6. LOVENOX [Concomitant]
     Active Substance: ENOXAPARIN SODIUM
     Indication: PRODUCT USED FOR UNKNOWN INDICATION
     Dosage: 1 DF, QD
     Route: 048
     Dates: start: 20111128

REACTIONS (4)
  - Aspiration [Fatal]
  - Altered state of consciousness [Not Recovered/Not Resolved]
  - Encephalopathy [Fatal]
  - Hypothermia [Fatal]

NARRATIVE: CASE EVENT DATE: 20111206
